FAERS Safety Report 4687369-8 (Version None)
Quarter: 2005Q2

REPORT INFORMATION
  Report Type: 
  Country: None (occurrence: None)
  Receive Date: 20050608
  Receipt Date: 20050531
  Transmission Date: 20051028
  Serious: Yes (Hospitalization, Other)
  Sender: FDA-Public Use
  Company Number: 2005072525

PATIENT
  Age: 67 Year
  Sex: Female

DRUGS (4)
  1. CELEBREX [Suspect]
     Indication: POST PROCEDURAL PAIN
     Dosage: 200 MG (200 MG, 1 IN 1 D)
     Dates: start: 20040101, end: 20040301
  2. NEURONTIN [Suspect]
     Indication: BACK PAIN
     Dates: start: 20030101
  3. ESTROGENS (ESTROGENS) [Suspect]
     Indication: ILL-DEFINED DISORDER
  4. SYNTHROID [Concomitant]

REACTIONS (7)
  - DRUG INEFFECTIVE [None]
  - FEELING ABNORMAL [None]
  - INFECTION [None]
  - PULMONARY THROMBOSIS [None]
  - SPINAL FUSION SURGERY [None]
  - THROMBOSIS [None]
  - WEIGHT INCREASED [None]
